FAERS Safety Report 5150825-2 (Version None)
Quarter: 2006Q4

REPORT INFORMATION
  Report Type: 
  Country: None (occurrence: None)
  Receive Date: 20061108
  Receipt Date: 20061026
  Transmission Date: 20070319
  Serious: Yes (Hospitalization)
  Sender: FDA-Public Use
  Company Number: 02100-JPN-06-0480

PATIENT
  Age: 68 Year
  Sex: Female

DRUGS (9)
  1. CILOSTAZOL [Suspect]
     Indication: THROMBOSIS PROPHYLAXIS
     Dosage: 200 MG ORAL
     Route: 048
     Dates: start: 20060718, end: 20060830
  2. ASPIRIN [Concomitant]
  3. ZOLPIDEM TARTRATE [Concomitant]
  4. FAMOTIDINE [Concomitant]
  5. ARGATROBAN [Concomitant]
  6. HYDROXYETHYLATED STARCH COMBINED DRUG [Concomitant]
  7. LOXOPROFEN SODIUM [Concomitant]
  8. SENNOSIDE [Concomitant]
  9. LEVOFLOXACIN [Concomitant]

REACTIONS (4)
  - ARTERIAL INJURY [None]
  - BONE MARROW FAILURE [None]
  - IATROGENIC INJURY [None]
  - NEUTROPENIA [None]
